FAERS Safety Report 6753710-5 (Version None)
Quarter: 2010Q2

REPORT INFORMATION
  Report Type: 
  Country: None (occurrence: None)
  Receive Date: 20100603
  Receipt Date: 20100526
  Transmission Date: 20101027
  Serious: Yes (Hospitalization, Other)
  Sender: FDA-Public Use
  Company Number: CA-ROCHE-705949

PATIENT
  Sex: Male

DRUGS (4)
  1. PEGINTERFERON ALFA-2A [Suspect]
     Indication: HEPATITIS C
     Route: 065
     Dates: start: 20040101
  2. RIBAVIRIN [Suspect]
     Indication: HEPATITIS C
     Route: 030
     Dates: start: 20040101
  3. EFFEXOR [Concomitant]
     Indication: DEPRESSION
     Dates: start: 19960101
  4. ZOPICLONE [Concomitant]
     Indication: DEPRESSION
     Dosage: DRUG REPORTED AS ZOPLICONE
     Dates: start: 19960101

REACTIONS (3)
  - ANAEMIA [None]
  - SCLERODERMA [None]
  - SUICIDAL IDEATION [None]
